FAERS Safety Report 24595854 (Version 7)
Quarter: 2025Q1

REPORT INFORMATION
  Report Type: Report from Study
  Country: IE (occurrence: IE)
  Receive Date: 20241109
  Receipt Date: 20250328
  Transmission Date: 20250409
  Serious: Yes (Hospitalization)
  Sender: IPSEN BIOPHARMACEUTICALS, INC.
  Company Number: IE-IPSEN Group, Research and Development-2024-20464

PATIENT
  Age: 75 Year
  Sex: Male

DRUGS (15)
  1. LANREOTIDE ACETATE [Suspect]
     Active Substance: LANREOTIDE ACETATE
     Indication: Endocrine neoplasm
     Route: 058
     Dates: start: 20240910
  2. ALLOPURINOL [Concomitant]
     Active Substance: ALLOPURINOL
  3. CLOPIDOGREL [Concomitant]
     Active Substance: CLOPIDOGREL BISULFATE
  4. FAMOTIDINE [Concomitant]
     Active Substance: FAMOTIDINE
  5. QUETIAPINE [Concomitant]
     Active Substance: QUETIAPINE
  6. MIRTAZAPINE [Concomitant]
     Active Substance: MIRTAZAPINE
  7. VENLABLUE XL [Concomitant]
  8. CARVEDILOL [Concomitant]
     Active Substance: CARVEDILOL
  9. SPIRONOLACTONE [Concomitant]
     Active Substance: SPIRONOLACTONE
  10. ZOPICLONE [Concomitant]
     Active Substance: ZOPICLONE
  11. SACUBITRIL [Concomitant]
     Active Substance: SACUBITRIL
  12. VALSARTAN [Concomitant]
     Active Substance: VALSARTAN
  13. TEMAZEPAM [Concomitant]
     Active Substance: TEMAZEPAM
  14. CREON [Concomitant]
     Active Substance: PANCRELIPASE AMYLASE\PANCRELIPASE LIPASE\PANCRELIPASE PROTEASE
  15. CHOLESTROGEL [Concomitant]

REACTIONS (4)
  - Diarrhoea [Recovering/Resolving]
  - Diarrhoea [Recovering/Resolving]
  - Diarrhoea [Unknown]
  - Fatigue [Not Recovered/Not Resolved]

NARRATIVE: CASE EVENT DATE: 20240912
